FAERS Safety Report 23003918 (Version 2)
Quarter: 2023Q4

REPORT INFORMATION
  Report Type: Spontaneous
  Country: JP (occurrence: None)
  Receive Date: 20230928
  Receipt Date: 20231006
  Transmission Date: 20240109
  Serious: Yes (Death, Hospitalization)
  Sender: FDA-Public Use
  Company Number: 2023A177933

PATIENT
  Age: 59 Year
  Sex: Female
  Weight: 53 kg

DRUGS (13)
  1. DAPAGLIFLOZIN [Suspect]
     Active Substance: DAPAGLIFLOZIN
     Indication: Cardiac failure chronic
     Dosage: DOSE UNKNOWN
     Route: 048
     Dates: start: 20220115, end: 20220425
  2. LASIX [Concomitant]
     Active Substance: FUROSEMIDE
     Route: 048
     Dates: end: 20220512
  3. SPIRONOLACTONE [Concomitant]
     Active Substance: SPIRONOLACTONE
     Route: 048
     Dates: end: 20220512
  4. TEPRENONE [Concomitant]
     Active Substance: TEPRENONE
     Route: 048
     Dates: end: 20220512
  5. WARFARIN [Concomitant]
     Active Substance: WARFARIN
     Route: 048
     Dates: end: 20220512
  6. CARVEDILOL [Concomitant]
     Active Substance: CARVEDILOL
     Route: 048
     Dates: end: 20220512
  7. TRICHLORMETHIAZIDE [Concomitant]
     Active Substance: TRICHLORMETHIAZIDE
     Route: 048
     Dates: end: 20220512
  8. FEBUXOSTAT [Concomitant]
     Active Substance: FEBUXOSTAT
     Route: 048
     Dates: end: 20220512
  9. OPSUMIT [Concomitant]
     Active Substance: MACITENTAN
     Route: 048
     Dates: end: 20220512
  10. SAMSCA [Concomitant]
     Active Substance: TOLVAPTAN
     Route: 048
     Dates: end: 20220401
  11. SAMSCA [Concomitant]
     Active Substance: TOLVAPTAN
     Route: 048
     Dates: start: 20220402, end: 20220512
  12. SODIUM FERROUS CITRATE [Concomitant]
     Active Substance: SODIUM FERROUS CITRATE
     Route: 048
     Dates: end: 20220512
  13. POTASSIUM ASPARTATE [Concomitant]
     Active Substance: POTASSIUM ASPARTATE
     Route: 048
     Dates: end: 20220512

REACTIONS (2)
  - Ketosis [Unknown]
  - Cardiac failure chronic [Fatal]

NARRATIVE: CASE EVENT DATE: 20220101
